FAERS Safety Report 25277360 (Version 1)
Quarter: 2025Q2

REPORT INFORMATION
  Report Type: Spontaneous
  Country: US (occurrence: US)
  Receive Date: 20250507
  Receipt Date: 20250507
  Transmission Date: 20250717
  Serious: Yes (Hospitalization)
  Sender: JOHNSON AND JOHNSON
  Company Number: US-JNJFOC-20250501102

PATIENT
  Sex: Female

DRUGS (4)
  1. RYBREVANT [Suspect]
     Active Substance: AMIVANTAMAB-VMJW
     Indication: Product used for unknown indication
     Route: 042
     Dates: start: 20250403
  2. CARBOPLATIN [Suspect]
     Active Substance: CARBOPLATIN
     Indication: Product used for unknown indication
     Route: 042
     Dates: start: 20250403
  3. PEMETREXED [Suspect]
     Active Substance: PEMETREXED
     Indication: Product used for unknown indication
     Route: 042
     Dates: start: 20250403
  4. DOXYCYCLINE [Concomitant]
     Active Substance: DOXYCYCLINE
     Indication: Prophylaxis
     Route: 048
     Dates: start: 20250403

REACTIONS (2)
  - Neutrophil count decreased [Recovering/Resolving]
  - Blood magnesium decreased [Recovering/Resolving]
